FAERS Safety Report 25925932 (Version 1)
Quarter: 2025Q4

REPORT INFORMATION
  Report Type: Spontaneous
  Country: US (occurrence: US)
  Receive Date: 20251015
  Receipt Date: 20251015
  Transmission Date: 20260118
  Serious: No
  Sender: SANOFI AVENTIS
  Company Number: US-SA-2025SA307002

PATIENT
  Age: 72 Year
  Sex: Female

DRUGS (4)
  1. DUPIXENT [Suspect]
     Active Substance: DUPILUMAB
     Indication: Chronic obstructive pulmonary disease
     Dosage: 300 MG, QOW
     Route: 058
  2. VENLAFAXINE [Concomitant]
     Active Substance: VENLAFAXINE HYDROCHLORIDE
     Dosage: UNK
  3. TRINTELLIX [Concomitant]
     Active Substance: VORTIOXETINE HYDROBROMIDE
     Dosage: UNK
  4. LAMOTRIGINE [Concomitant]
     Active Substance: LAMOTRIGINE
     Dosage: UNK

REACTIONS (3)
  - Fall [Unknown]
  - Chronic obstructive pulmonary disease [Unknown]
  - Spinal column injury [Unknown]

NARRATIVE: CASE EVENT DATE: 20250901
